FAERS Safety Report 23569604 (Version 2)
Quarter: 2024Q1

REPORT INFORMATION
  Report Type: Spontaneous
  Country: HR (occurrence: HR)
  Receive Date: 20240227
  Receipt Date: 20240329
  Transmission Date: 20240410
  Serious: Yes (Death, Other)
  Sender: FDA-Public Use
  Company Number: HR-TAKEDA-2024TUS017881

PATIENT
  Sex: Female

DRUGS (3)
  1. NINLARO [Suspect]
     Active Substance: IXAZOMIB CITRATE
     Indication: Plasma cell myeloma refractory
     Dosage: 4 MILLIGRAM
     Route: 065
     Dates: start: 20230116, end: 20230116
  2. DEXAMETHASONE [Suspect]
     Active Substance: DEXAMETHASONE
     Indication: Plasma cell myeloma refractory
     Dosage: 40 MILLIGRAM
     Route: 065
  3. LENALIDOMIDE [Suspect]
     Active Substance: LENALIDOMIDE
     Indication: Plasma cell myeloma refractory
     Dosage: 25 MILLIGRAM
     Route: 065

REACTIONS (2)
  - Plasma cell myeloma refractory [Fatal]
  - Escherichia sepsis [Fatal]
